FAERS Safety Report 4929256-3 (Version None)
Quarter: 2006Q1

REPORT INFORMATION
  Report Type: 
  Country: None (occurrence: None)
  Receive Date: 20060130
  Receipt Date: 20051013
  Transmission Date: 20060701
  Serious: Yes (Hospitalization)
  Sender: FDA-Public Use
  Company Number: 05P-163-0313601-00

PATIENT
  Age: 5 Year
  Sex: Female

DRUGS (1)
  1. OMNICEF [Suspect]
     Indication: UPPER RESPIRATORY TRACT INFECTION
     Dosage: 5 DAYS
     Dates: start: 20050901, end: 20050901

REACTIONS (1)
  - THROMBOCYTOPENIA [None]
